FAERS Safety Report 8485333-4 (Version None)
Quarter: 2012Q2

REPORT INFORMATION
  Report Type: 
  Country: None (occurrence: None)
  Receive Date: 20120627
  Receipt Date: 20120627
  Transmission Date: 20120825
  Serious: Yes (Hospitalization)
  Sender: FDA-Public Use
  Company Number: None

PATIENT
  Age: 70 Year
  Sex: Male
  Weight: 107.5 kg

DRUGS (1)
  1. FUROSEMIDE [Suspect]
     Dates: start: 20120303

REACTIONS (1)
  - RENAL FAILURE ACUTE [None]
